FAERS Safety Report 19201771 (Version 1)
Quarter: 2021Q2

REPORT INFORMATION
  Report Type: Spontaneous
  Country: CA (occurrence: CA)
  Receive Date: 20210430
  Receipt Date: 20210430
  Transmission Date: 20210717
  Serious: Yes (Death, Other)
  Sender: FDA-Public Use
  Company Number: CA-SA-2021SA122040

PATIENT
  Age: 50 Year
  Sex: Male

DRUGS (13)
  1. MORPHINE SALT NOT SPECIFIED [Suspect]
     Active Substance: MORPHINE
  2. SCOPOLAMINE [HYOSCINE] [Suspect]
     Active Substance: SCOPOLAMINE
  3. CLONAZEPAM. [Suspect]
     Active Substance: CLONAZEPAM
  4. LITHIUM. [Suspect]
     Active Substance: LITHIUM
  5. DOCUSATE SODIUM. [Suspect]
     Active Substance: DOCUSATE SODIUM
  6. LEVETIRACETAM. [Suspect]
     Active Substance: LEVETIRACETAM
  7. VALPROIC ACID. [Suspect]
     Active Substance: VALPROIC ACID
  8. TRIHEXYPHENIDYL HYDROCHLORIDE. [Suspect]
     Active Substance: TRIHEXYPHENIDYL HYDROCHLORIDE
  9. IRBESARTAN. [Suspect]
     Active Substance: IRBESARTAN
  10. TOPIRAMATE. [Suspect]
     Active Substance: TOPIRAMATE
  11. PARACETAMOL [Suspect]
     Active Substance: ACETAMINOPHEN
  12. CITALOPRAM [Suspect]
     Active Substance: CITALOPRAM HYDROBROMIDE
  13. TIZANIDINE. [Suspect]
     Active Substance: TIZANIDINE

REACTIONS (4)
  - Failure to suspend medication [Fatal]
  - Accidental death [Fatal]
  - Toxicity to various agents [Fatal]
  - Wrong patient received product [Fatal]
